FAERS Safety Report 5328484-5 (Version None)
Quarter: 2007Q2

REPORT INFORMATION
  Report Type: 
  Country: None (occurrence: None)
  Receive Date: 20070518
  Receipt Date: 20050902
  Transmission Date: 20071010
  Serious: Yes (Disabling, Other)
  Sender: FDA-Public Use
  Company Number: US-ROCHE-414496

PATIENT
  Age: 60 Year
  Sex: Female
  Weight: 76.7 kg

DRUGS (6)
  1. BONIVA [Suspect]
     Indication: OSTEOPOROSIS
     Route: 048
     Dates: start: 20050815, end: 20050801
  2. ZOLOFT [Concomitant]
     Route: 048
  3. ATIVAN [Concomitant]
     Route: 048
  4. ALORA [Concomitant]
     Dosage: DRUG NAME REPORTED AS ALORA PATCH. ROUTE REPORTED AS SKIN.
     Route: 050
  5. ZYRTEC [Concomitant]
     Dosage: DOSAGE REGIMEN REPORTED AS ^PRN^.
     Route: 048
  6. CARAFATE [Concomitant]
     Dosage: DOSAGE REGIMEN: 1/4 HR AC/HS.

REACTIONS (5)
  - ABDOMINAL DISCOMFORT [None]
  - BARRETT'S OESOPHAGUS [None]
  - FATIGUE [None]
  - OESOPHAGEAL DISORDER [None]
  - OESOPHAGEAL PAIN [None]
